FAERS Safety Report 6760145-8 (Version None)
Quarter: 2010Q2

REPORT INFORMATION
  Report Type: 
  Country: None (occurrence: None)
  Receive Date: 20100608
  Receipt Date: 20100525
  Transmission Date: 20101027
  Serious: Yes (Hospitalization, Other)
  Sender: FDA-Public Use
  Company Number: DE-CELGENEUS-062-50794-10051318

PATIENT
  Age: 64 Year
  Sex: Male

DRUGS (3)
  1. VIDAZA [Suspect]
     Indication: DRUG USE FOR UNKNOWN INDICATION
     Route: 058
     Dates: start: 20090505, end: 20090703
  2. CIPRO [Concomitant]
     Indication: PROPHYLAXIS
     Route: 065
  3. VFEND [Concomitant]
     Indication: PROPHYLAXIS
     Route: 065

REACTIONS (3)
  - PNEUMONIA PRIMARY ATYPICAL [None]
  - PYREXIA [None]
  - TACHYARRHYTHMIA [None]
